FAERS Safety Report 4751592-4 (Version None)
Quarter: 2005Q3

REPORT INFORMATION
  Report Type: 
  Country: None (occurrence: None)
  Receive Date: 20050824
  Receipt Date: 20050818
  Transmission Date: 20060218
  Serious: Yes (Other)
  Sender: FDA-Public Use
  Company Number: DE-GLAXOSMITHKLINE-D0047330A

PATIENT
  Sex: Female

DRUGS (2)
  1. ESKAZOLE [Suspect]
     Indication: ECHINOCOCCIASIS
     Route: 065
  2. UNSPECIFIED MEDICATIONS [Concomitant]
     Route: 065

REACTIONS (1)
  - PANCYTOPENIA [None]
